FAERS Safety Report 16999908 (Version 2)
Quarter: 2022Q4

REPORT INFORMATION
  Report Type: Spontaneous
  Country: US (occurrence: US)
  Receive Date: 20191106
  Receipt Date: 20221116
  Transmission Date: 20230113
  Serious: No
  Sender: FDA-Public Use
  Company Number: US-VERTEX PHARMACEUTICALS-2019-010617

PATIENT
  Sex: Female

DRUGS (1)
  1. SYMDEKO [Suspect]
     Active Substance: IVACAFTOR\TEZACAFTOR
     Indication: Cystic fibrosis
     Dosage: 1 TAB (100 MG TEZACAFTOR/150MG IVACAFTOR) MORNING AND 1 TAB (150MG IVACAFTOR) EVENING
     Route: 048
     Dates: start: 20190410, end: 20200129

REACTIONS (1)
  - Hypersensitivity [Unknown]
